FAERS Safety Report 9005155 (Version 1)
Quarter: 2013Q1

REPORT INFORMATION
  Report Type: Spontaneous
  Country: US (occurrence: US)
  Receive Date: 20130109
  Receipt Date: 20130109
  Transmission Date: 20140127
  Serious: Yes (Other)
  Sender: FDA-Public Use
  Company Number: US-NAPPMUNDI-USA-2013-0097401

PATIENT
  Sex: Female

DRUGS (2)
  1. SENOKOT [Suspect]
     Indication: PRODUCT USED FOR UNKNOWN INDICATION
     Dosage: 8.6 MG, DAILY
     Route: 048
  2. ALBUTEROL                          /00139501/ [Concomitant]
     Indication: ASTHMA
     Dosage: 2 PUFF, PRN
     Route: 055

REACTIONS (5)
  - Swelling face [Recovered/Resolved]
  - Drug hypersensitivity [Recovered/Resolved]
  - Rash [Recovered/Resolved]
  - Dyspnoea [Recovered/Resolved]
  - Constipation [Unknown]
